FAERS Safety Report 10169457 (Version 1)
Quarter: 2014Q2

REPORT INFORMATION
  Report Type: Spontaneous
  Country: GB (occurrence: GB)
  Receive Date: 20140513
  Receipt Date: 20140513
  Transmission Date: 20141212
  Serious: Yes (Other)
  Sender: FDA-Public Use
  Company Number: GB-TEVA-480229ISR

PATIENT
  Age: 47 Year
  Sex: Female
  Weight: 63.5 kg

DRUGS (9)
  1. SIMVASTATIN [Suspect]
     Indication: GLOMERULONEPHRITIS
     Route: 048
  2. STATINS [Suspect]
     Indication: GLOMERULONEPHRITIS
     Route: 048
  3. OMEPRAZOLE [Concomitant]
  4. PARACETAMOL [Concomitant]
  5. AMITRIPTYLINE [Concomitant]
     Dosage: PROBABLY AT 60MG, BUT IT MAY HAVE BEEN 10MG DAILY
  6. TRAMADOL [Concomitant]
  7. LORATADINE [Concomitant]
  8. FUROSEMIDE [Concomitant]
     Dosage: 40MG, PROBABLY
  9. INHALERS [Concomitant]
     Dosage: 3 INHLAERS

REACTIONS (4)
  - Paralysis [Recovered/Resolved]
  - Hypokinesia [Recovered/Resolved with Sequelae]
  - Pain [Recovered/Resolved]
  - Burning sensation [Recovered/Resolved]
